FAERS Safety Report 23698110 (Version 1)
Quarter: 2024Q2

REPORT INFORMATION
  Report Type: Spontaneous
  Country: CA (occurrence: CA)
  Receive Date: 20240402
  Receipt Date: 20240402
  Transmission Date: 20240716
  Serious: Yes (Hospitalization, Other)
  Sender: FDA-Public Use
  Company Number: CA-TAKEDA-2024TUS029873

PATIENT
  Age: 61 Year
  Sex: Male

DRUGS (1)
  1. PRUCALOPRIDE SUCCINATE [Suspect]
     Active Substance: PRUCALOPRIDE SUCCINATE
     Indication: Diabetic gastroparesis
     Dosage: 1 MILLIGRAM, QD
     Route: 065

REACTIONS (5)
  - Hospitalisation [Unknown]
  - Renal impairment [Unknown]
  - Inability to afford medication [Unknown]
  - Off label use [Unknown]
  - Product use issue [Unknown]
